FAERS Safety Report 9455130 (Version 3)
Quarter: 2013Q3

REPORT INFORMATION
  Report Type: Report from Study
  Country: IL (occurrence: IL)
  Receive Date: 20130813
  Receipt Date: 20130830
  Transmission Date: 20140515
  Serious: Yes (Life-Threatening, Hospitalization)
  Sender: FDA-Public Use
  Company Number: IL-ROCHE-1260703

PATIENT
  Age: 80 Year
  Sex: Female
  Weight: 73.8 kg

DRUGS (13)
  1. TOCILIZUMAB [Suspect]
     Indication: RHEUMATOID ARTHRITIS
     Route: 042
     Dates: start: 20130102, end: 20130626
  2. METHOTREXATE [Suspect]
     Indication: RHEUMATOID ARTHRITIS
     Route: 048
     Dates: start: 20120108
  3. PREDNISONE [Concomitant]
     Indication: RHEUMATOID ARTHRITIS
     Route: 048
     Dates: start: 20070419
  4. MICROPIRIN [Concomitant]
     Route: 048
     Dates: start: 20070428
  5. INSULIN LISPRO [Concomitant]
     Indication: DIABETES MELLITUS
     Route: 065
     Dates: start: 20111123
  6. JANUMET [Concomitant]
     Indication: DIABETES MELLITUS
     Route: 048
     Dates: start: 20121118
  7. FOLIC ACID [Concomitant]
     Indication: RHEUMATOID ARTHRITIS
     Route: 048
     Dates: start: 20120108
  8. LANTUS [Concomitant]
     Indication: DIABETES MELLITUS
     Route: 065
     Dates: start: 20100317
  9. GLUCOMIN [Concomitant]
     Indication: DIABETES MELLITUS
     Route: 048
     Dates: start: 20110117
  10. LANTON [Concomitant]
     Route: 048
     Dates: start: 20080501
  11. PLAQUENIL [Concomitant]
  12. SALAZOPYRIN [Concomitant]
  13. INSULIN [Concomitant]
     Indication: TYPE 2 DIABETES MELLITUS

REACTIONS (5)
  - Pancytopenia [Not Recovered/Not Resolved]
  - Overdose [Unknown]
  - Skin necrosis [Not Recovered/Not Resolved]
  - Arthralgia [Unknown]
  - Diarrhoea [Unknown]
